FAERS Safety Report 4734508-6 (Version None)
Quarter: 2005Q3

REPORT INFORMATION
  Report Type: 
  Country: None (occurrence: None)
  Receive Date: 20050804
  Receipt Date: 20050715
  Transmission Date: 20060218
  Serious: Yes (Death, Life-Threatening)
  Sender: FDA-Public Use
  Company Number: 200512100JP

PATIENT
  Age: 58 Year
  Sex: Male
  Weight: 51.3 kg

DRUGS (14)
  1. TAXOTERE [Suspect]
     Indication: LUNG NEOPLASM MALIGNANT
     Route: 041
     Dates: start: 20050524, end: 20050524
  2. FLORID [Concomitant]
     Route: 048
  3. OXYCONTIN [Concomitant]
     Route: 048
  4. DECADRON [Concomitant]
     Route: 048
  5. VOLTAREN [Concomitant]
     Route: 048
  6. LENDORMIN [Concomitant]
     Route: 048
  7. LOXONIN [Concomitant]
     Route: 048
  8. CYTOTEC [Concomitant]
     Route: 048
  9. MAGLAX [Concomitant]
     Route: 048
  10. ADONA [Concomitant]
     Route: 048
  11. TRANSAMIN [Concomitant]
     Route: 048
  12. KYTRIL [Concomitant]
     Route: 048
  13. CBDCA [Concomitant]
     Indication: LUNG NEOPLASM MALIGNANT
     Dates: start: 20041201, end: 20050301
  14. TAXOL [Concomitant]
     Indication: LUNG NEOPLASM MALIGNANT
     Dates: start: 20041201, end: 20050301

REACTIONS (8)
  - ALANINE AMINOTRANSFERASE INCREASED [None]
  - BLOOD ALKALINE PHOSPHATASE INCREASED [None]
  - BLOOD LACTATE DEHYDROGENASE INCREASED [None]
  - HAEMATOCRIT DECREASED [None]
  - HAEMOGLOBIN DECREASED [None]
  - INTERSTITIAL LUNG DISEASE [None]
  - RED BLOOD CELL COUNT DECREASED [None]
  - WHITE BLOOD CELL COUNT INCREASED [None]
